FAERS Safety Report 14702584 (Version 1)
Quarter: 2018Q2

REPORT INFORMATION
  Report Type: Spontaneous
  Country: FR (occurrence: FR)
  Receive Date: 20180402
  Receipt Date: 20180402
  Transmission Date: 20180711
  Serious: Yes (Disabling)
  Sender: FDA-Public Use
  Company Number: FR-MERCK KGAA-2044856

PATIENT
  Sex: Female

DRUGS (1)
  1. NOVOTHYROX [Suspect]
     Active Substance: LEVOTHYROXINE SODIUM
     Indication: PRODUCT USED FOR UNKNOWN INDICATION

REACTIONS (16)
  - Feeling of despair [None]
  - Emotional distress [None]
  - Loss of personal independence in daily activities [None]
  - Muscle spasms [None]
  - Insomnia [None]
  - Asthenia [None]
  - Fatigue [None]
  - Social avoidant behaviour [None]
  - Gait disturbance [Not Recovered/Not Resolved]
  - Alopecia [None]
  - Anxiety [None]
  - Suspiciousness [None]
  - Pain in extremity [Recovering/Resolving]
  - Nausea [None]
  - Dizziness [None]
  - Thyroxine free increased [None]
